FAERS Safety Report 6094569 (Version 2)
Quarter: 2013Q3

REPORT INFORMATION
  Report Type: Report from Study
  Country: ZA (occurrence: ZA)
  Receive Date: 20060731
  Receipt Date: 20130812
  Transmission Date: 20140515
  Serious: Yes (Hospitalization)
  Sender: FDA-Public Use
  Company Number: ZA-BRISTOL-MYERS SQUIBB COMPANY-13448253

PATIENT
  Age: 50 Year
  Sex: Male

DRUGS (6)
  1. ATAZANAVIR [Suspect]
     Indication: HIV INFECTION
     Route: 048
     Dates: start: 20000301
  2. STAVUDINE [Suspect]
     Indication: HIV INFECTION
     Route: 048
     Dates: start: 20000301
  3. DIDANOSINE [Suspect]
     Indication: HIV INFECTION
     Route: 048
     Dates: start: 20030503
  4. MYPRODOL [Concomitant]
     Dates: start: 20040331
  5. TRYPTANOL [Concomitant]
     Dates: start: 20060424
  6. PHENERGAN [Concomitant]
     Dates: start: 20050525

REACTIONS (1)
  - Nephrolithiasis [Recovered/Resolved]
